FAERS Safety Report 18113549 (Version 1)
Quarter: 2020Q3

REPORT INFORMATION
  Report Type: Spontaneous
  Country: US (occurrence: US)
  Receive Date: 20200805
  Receipt Date: 20200805
  Transmission Date: 20201103
  Serious: Yes (Hospitalization)
  Sender: FDA-Public Use
  Company Number: None

PATIENT
  Age: 77 Year
  Sex: Male
  Weight: 66 kg

DRUGS (1)
  1. OMALIZUMAB (OMALIZUMAB 150MG/ML INJ, SYR, 1ML) [Suspect]
     Active Substance: OMALIZUMAB
     Indication: ASTHMA-CHRONIC OBSTRUCTIVE PULMONARY DISEASE OVERLAP SYNDROME
     Route: 058
     Dates: start: 20191029, end: 20200706

REACTIONS (6)
  - Acute respiratory failure [None]
  - Deep vein thrombosis [None]
  - Alcaligenes infection [None]
  - Pelvic venous thrombosis [None]
  - Pulmonary embolism [None]
  - Embolism venous [None]

NARRATIVE: CASE EVENT DATE: 20200706
